FAERS Safety Report 6414674-7 (Version None)
Quarter: 2009Q4

REPORT INFORMATION
  Report Type: 
  Country: None (occurrence: None)
  Receive Date: 20091026
  Receipt Date: 20091019
  Transmission Date: 20100525
  Serious: Yes (Other)
  Sender: FDA-Public Use
  Company Number: US-SANOFI-SYNTHELABO-A03200904814

PATIENT
  Sex: Female
  Weight: 61.22 kg

DRUGS (6)
  1. INDERAL [Concomitant]
     Indication: DRUG USE FOR UNKNOWN INDICATION
     Route: 048
  2. KLOR-CON [Concomitant]
     Indication: DRUG USE FOR UNKNOWN INDICATION
     Route: 048
  3. ALPRAZOLAM [Concomitant]
     Indication: DRUG USE FOR UNKNOWN INDICATION
     Route: 048
  4. ZOCOR [Concomitant]
     Indication: DRUG USE FOR UNKNOWN INDICATION
     Dosage: UNK
     Route: 065
     Dates: end: 20090901
  5. HYDROCHLOROTHIAZIDE [Concomitant]
     Indication: DRUG USE FOR UNKNOWN INDICATION
     Route: 048
  6. PLAVIX [Suspect]
     Indication: STENT PLACEMENT
     Route: 048
     Dates: start: 20080901

REACTIONS (7)
  - ARTHRITIS [None]
  - BLOOD PRESSURE INCREASED [None]
  - CAROTID ARTERY OCCLUSION [None]
  - CONTUSION [None]
  - DIZZINESS POSTURAL [None]
  - LACERATION [None]
  - NERVOUSNESS [None]
